FAERS Safety Report 18993172 (Version 1)
Quarter: 2021Q1

REPORT INFORMATION
  Report Type: Spontaneous
  Country: JP (occurrence: JP)
  Receive Date: 20210310
  Receipt Date: 20210310
  Transmission Date: 20210420
  Serious: Yes (Other)
  Sender: FDA-Public Use
  Company Number: JP-GLAXOSMITHKLINE-JP2021JPN056055

PATIENT
  Age: 69 Year
  Sex: Female

DRUGS (25)
  1. BETAMETHASONE SODIUM PHOSPHATE [Concomitant]
     Active Substance: BETAMETHASONE SODIUM PHOSPHATE
     Dosage: UNK, 2 DOSES
     Route: 047
  2. GATIFLOXACIN HYDRATE [Concomitant]
     Indication: HERPES OPHTHALMIC
     Dosage: UNK, 3 TO 5 DOSES
     Route: 047
  3. GATIFLOXACIN HYDRATE [Concomitant]
     Indication: POSTOPERATIVE CARE
     Dosage: UNK, 5 DOSES
     Route: 047
     Dates: start: 201810, end: 201811
  4. BETAMETHASONE SODIUM PHOSPHATE [Concomitant]
     Active Substance: BETAMETHASONE SODIUM PHOSPHATE
     Indication: HERPES OPHTHALMIC
     Dosage: UNK, 3 DOSES
     Route: 047
  5. BETAMETHASONE SODIUM PHOSPHATE [Concomitant]
     Active Substance: BETAMETHASONE SODIUM PHOSPHATE
     Dosage: UNK, 5 DOSES PER DAY
     Route: 047
  6. FLUOROMETHOLONE. [Concomitant]
     Active Substance: FLUOROMETHOLONE
     Indication: HERPES OPHTHALMIC
     Dosage: UNK, 3 TO 5 DOSES
     Route: 047
  7. FLUOROMETHOLONE. [Concomitant]
     Active Substance: FLUOROMETHOLONE
     Dosage: UNK, 5 DOSES
     Route: 047
     Dates: start: 201810, end: 201811
  8. LEVOFLOXACIN HEMIHYDRATE [Concomitant]
     Active Substance: LEVOFLOXACIN
     Dosage: UNK, 6 DOSES
     Route: 047
     Dates: start: 201811
  9. LEVOFLOXACIN HEMIHYDRATE [Concomitant]
     Active Substance: LEVOFLOXACIN
     Dosage: UNK, 5 DOSES PER DAY
     Route: 047
  10. BETAMETHASONE SODIUM PHOSPHATE [Concomitant]
     Active Substance: BETAMETHASONE SODIUM PHOSPHATE
     Indication: POSTOPERATIVE CARE
     Dosage: UNK, 3 DOSES
     Route: 047
  11. MICONAZOLE. [Concomitant]
     Active Substance: MICONAZOLE
     Indication: KERATITIS FUNGAL
     Dosage: UNK, 6 DOSES
     Route: 047
  12. VALACICLOVIR HYDROCHLORIDE [Suspect]
     Active Substance: VALACYCLOVIR HYDROCHLORIDE
     Indication: HERPES OPHTHALMIC
     Dosage: 1000 MG/DAY
     Route: 048
  13. GATIFLOXACIN HYDRATE [Concomitant]
     Dosage: UNK, 5 DOSES
     Route: 047
  14. ACYCLOVIR. [Concomitant]
     Active Substance: ACYCLOVIR
     Dosage: UNK, 5 DOSES
     Route: 047
     Dates: start: 201810
  15. ACYCLOVIR. [Concomitant]
     Active Substance: ACYCLOVIR
     Dosage: UNK, 3 DOSES
     Route: 047
  16. VORICONAZOLE. [Concomitant]
     Active Substance: VORICONAZOLE
     Indication: POSTOPERATIVE CARE
     Dosage: UNK, 5 DOSES
     Route: 047
  17. ATROPINE SULFATE HYDRATE [Concomitant]
     Active Substance: ATROPINE SULFATE
     Indication: KERATITIS FUNGAL
     Dosage: UNK, 1 DOSE
     Route: 047
  18. ATROPINE SULFATE HYDRATE [Concomitant]
     Active Substance: ATROPINE SULFATE
     Indication: POSTOPERATIVE CARE
     Dosage: UNK, 1 DOSE
     Route: 047
  19. GATIFLOXACIN HYDRATE [Concomitant]
     Dosage: UNK, 3 DOSES
     Route: 047
  20. GATIFLOXACIN HYDRATE [Concomitant]
     Dosage: UNK, 5 DOSES PER DAY
     Route: 047
  21. ACYCLOVIR. [Concomitant]
     Active Substance: ACYCLOVIR
     Dosage: UNK, GRADUAL DISCONTINUATION
     Route: 047
  22. LEVOFLOXACIN HEMIHYDRATE [Concomitant]
     Active Substance: LEVOFLOXACIN
     Dosage: UNK, 5 DOSES
     Route: 047
  23. FLUOROMETHOLONE. [Concomitant]
     Active Substance: FLUOROMETHOLONE
     Dosage: UNK, 5 DOSES PER DAY
     Route: 047
  24. ACYCLOVIR. [Concomitant]
     Active Substance: ACYCLOVIR
     Indication: HERPES OPHTHALMIC
     Dosage: UNK, 3 TO 5 DOSES
     Route: 047
  25. VORICONAZOLE. [Concomitant]
     Active Substance: VORICONAZOLE
     Indication: KERATITIS FUNGAL
     Dosage: UNK, 6 DOSES
     Route: 047

REACTIONS (5)
  - Hypopyon [Unknown]
  - Condition aggravated [Unknown]
  - Corneal perforation [Unknown]
  - Keratitis bacterial [Unknown]
  - Atypical mycobacterial infection [Unknown]
